FAERS Safety Report 8665053 (Version 3)
Quarter: 2013Q4

REPORT INFORMATION
  Report Type: Spontaneous
  Country: DE (occurrence: DE)
  Receive Date: 20120716
  Receipt Date: 20131105
  Transmission Date: 20140711
  Serious: Yes (Hospitalization)
  Sender: FDA-Public Use
  Company Number: DE-009507513-1207DEU001509

PATIENT
  Age: 79 Year
  Sex: Female
  Weight: 70 kg

DRUGS (2)
  1. ALENDRONATE SODIUM [Suspect]
     Indication: OSTEOPOROSIS
     Dosage: UNK
     Route: 048
  2. DIURETIKUM VERLA [Concomitant]

REACTIONS (1)
  - Femur fracture [Not Recovered/Not Resolved]
